FAERS Safety Report 9415245 (Version 2)
Quarter: 2013Q3

REPORT INFORMATION
  Report Type: Report from Study
  Country: BR (occurrence: BR)
  Receive Date: 20130723
  Receipt Date: 20130820
  Transmission Date: 20140515
  Serious: Yes (Other)
  Sender: FDA-Public Use
  Company Number: PHHY2013BR076643

PATIENT
  Sex: Male
  Weight: 102 kg

DRUGS (8)
  1. TACROLIMUS SANDOZ [Suspect]
     Dosage: UNK UKN, UNK
  2. MYCOPHENOLATE [Suspect]
     Dosage: 720 MG, BID
     Route: 048
  3. MYCOPHENOLATE [Suspect]
     Dosage: 360 MG, TID
     Route: 048
  4. MYCOPHENOLATE [Suspect]
     Dosage: 360 MG, BID
     Route: 048
  5. MYCOPHENOLATE [Suspect]
     Dosage: 360 MG, TID
     Route: 048
  6. PREDNISONE SANDOZ [Suspect]
     Dosage: 20 MG, UNK
  7. PREDNISONE SANDOZ [Suspect]
     Dosage: 5 MG, UNK
  8. EVEROLIMUS [Suspect]
     Dosage: UNK UKN, UNK

REACTIONS (4)
  - Renal tubular necrosis [Unknown]
  - Complications of transplanted kidney [Unknown]
  - Cytomegalovirus infection [Unknown]
  - Blood creatinine increased [Unknown]
